FAERS Safety Report 8992779 (Version 1)
Quarter: 2013Q1

REPORT INFORMATION
  Report Type: Report from Study
  Country: GB (occurrence: GB)
  Receive Date: 20130102
  Receipt Date: 20130102
  Transmission Date: 20140127
  Serious: Yes (Death, Other)
  Sender: FDA-Public Use
  Company Number: GB-ROCHE-1175537

PATIENT
  Age: 69 Year
  Sex: Male

DRUGS (1)
  1. ALTEPLASE [Suspect]
     Indication: MYOCARDIAL INFARCTION
     Route: 065
     Dates: start: 19880219

REACTIONS (3)
  - Death [Fatal]
  - Atrial fibrillation [Recovered/Resolved]
  - Ventricular extrasystoles [Recovered/Resolved]
